FAERS Safety Report 5843015-9 (Version None)
Quarter: 2008Q3

REPORT INFORMATION
  Report Type: 
  Country: None (occurrence: None)
  Receive Date: 20080811
  Receipt Date: 20080728
  Transmission Date: 20090109
  Serious: Yes (Hospitalization, Other)
  Sender: FDA-Public Use
  Company Number: 19912

PATIENT
  Age: 47 Year
  Sex: Male

DRUGS (6)
  1. DAUNORUBICIN HCL [Suspect]
     Indication: MULTIPLE MYELOMA
  2. VINCRISTINE [Suspect]
  3. DEXAMETHASONE TAB [Suspect]
  4. CYCLOPHOSPHAMIDE [Suspect]
  5. THALIDOMIDE [Suspect]
  6. MELPHALAN [Suspect]

REACTIONS (1)
  - GUILLAIN-BARRE SYNDROME [None]
